FAERS Safety Report 22326074 (Version 1)
Quarter: 2023Q2

REPORT INFORMATION
  Report Type: Spontaneous
  Country: US (occurrence: US)
  Receive Date: 20230516
  Receipt Date: 20230516
  Transmission Date: 20230722
  Serious: No
  Sender: FDA-Public Use
  Company Number: US-MYLANLABS-2023M1042321

PATIENT
  Sex: Female
  Weight: 65.77 kg

DRUGS (1)
  1. ESTRADIOL TRANSDERMAL SYSTEM [Suspect]
     Active Substance: ESTRADIOL
     Indication: Hormone therapy
     Dosage: 0.075 MILLIGRAM, QD (TWICE WEEKLY)
     Route: 062

REACTIONS (6)
  - Application site irritation [Unknown]
  - Application site pruritus [Unknown]
  - Application site pain [Unknown]
  - Application site swelling [Unknown]
  - Application site erythema [Unknown]
  - Inappropriate schedule of product administration [Unknown]
